FAERS Safety Report 10153019 (Version 1)
Quarter: 2014Q2

REPORT INFORMATION
  Report Type: Spontaneous
  Country: FR (occurrence: FR)
  Receive Date: 20140505
  Receipt Date: 20140505
  Transmission Date: 20141212
  Serious: Yes (Death, Hospitalization, Other)
  Sender: FDA-Public Use
  Company Number: FR-WATSON-2014-08821

PATIENT
  Age: 47 Year
  Sex: Male

DRUGS (2)
  1. QUININE SULPHATE (UNKNOWN) [Suspect]
     Indication: ANTI-INFECTIVE THERAPY
     Dosage: UNK, BID
     Route: 030
  2. AMOXICILLIN [Concomitant]
     Indication: ANTI-INFECTIVE THERAPY
     Dosage: 2 G, DAILY
     Route: 048

REACTIONS (4)
  - Gas gangrene [Fatal]
  - Septic shock [Fatal]
  - Renal failure acute [Not Recovered/Not Resolved]
  - Klebsiella infection [Not Recovered/Not Resolved]
